FAERS Safety Report 16377569 (Version 1)
Quarter: 2019Q2

REPORT INFORMATION
  Report Type: Spontaneous
  Country: US (occurrence: US)
  Receive Date: 20190531
  Receipt Date: 20190531
  Transmission Date: 20190711
  Serious: No
  Sender: FDA-Public Use
  Company Number: US-PFIZER INC-2019229908

PATIENT
  Age: 63 Year
  Sex: Female

DRUGS (10)
  1. DARIFENACIN. [Suspect]
     Active Substance: DARIFENACIN
     Dosage: UNK
  2. LOVAZA [Suspect]
     Active Substance: OMEGA-3-ACID ETHYL ESTERS
     Dosage: UNK
  3. LEVOFLOXACIN. [Suspect]
     Active Substance: LEVOFLOXACIN
     Dosage: UNK
  4. CLARITHROMYCIN. [Suspect]
     Active Substance: CLARITHROMYCIN
     Dosage: UNK
  5. ENABLEX [Suspect]
     Active Substance: DARIFENACIN HYDROBROMIDE
     Dosage: UNK
  6. MELOXICAM. [Suspect]
     Active Substance: MELOXICAM
     Dosage: UNK
  7. AMOXICILLIN. [Suspect]
     Active Substance: AMOXICILLIN
     Dosage: UNK
  8. BIAXIN [Suspect]
     Active Substance: CLARITHROMYCIN
     Dosage: UNK
  9. CODEINE [Suspect]
     Active Substance: CODEINE
     Dosage: UNK
  10. DARVOCET [Suspect]
     Active Substance: ACETAMINOPHEN\PROPOXYPHENE HYDROCHLORIDE
     Dosage: UNK

REACTIONS (1)
  - Drug hypersensitivity [Unknown]
